FAERS Safety Report 6383505-6 (Version None)
Quarter: 2009Q4

REPORT INFORMATION
  Report Type: 
  Country: None (occurrence: None)
  Receive Date: 20091001
  Receipt Date: 20090925
  Transmission Date: 20100525
  Serious: Yes (Death, Other)
  Sender: FDA-Public Use
  Company Number: US-ELI_LILLY_AND_COMPANY-US200909003164

PATIENT
  Age: 46 Year
  Sex: Male

DRUGS (2)
  1. HUMULIN R [Suspect]
  2. HUMULIN R [Suspect]
     Dates: start: 20051220

REACTIONS (4)
  - DEATH [None]
  - DIABETIC COMA [None]
  - DRUG DISPENSING ERROR [None]
  - INCORRECT DRUG DOSAGE FORM ADMINISTERED [None]
